FAERS Safety Report 4329991-4 (Version None)
Quarter: 2004Q1

REPORT INFORMATION
  Report Type: 
  Country: None (occurrence: None)
  Receive Date: 20040329
  Receipt Date: 20040315
  Transmission Date: 20041129
  Serious: No
  Sender: FDA-Public Use
  Company Number: 04P-163-0253644-00

PATIENT
  Age: 84 Year
  Sex: Female

DRUGS (1)
  1. ABBOKINASE [Suspect]
     Indication: FIBRINOLYSIS
     Dosage: 1,000,000 UNITS, INTRAVENOUS
     Route: 042

REACTIONS (5)
  - CEREBRAL HAEMORRHAGE [None]
  - CEREBROVASCULAR ACCIDENT [None]
  - DYSARTHRIA [None]
  - HEMIPARESIS [None]
  - MENTAL DISORDER [None]
